FAERS Safety Report 4895127-4 (Version None)
Quarter: 2006Q1

REPORT INFORMATION
  Report Type: 
  Country: None (occurrence: None)
  Receive Date: 20060125
  Receipt Date: 20060113
  Transmission Date: 20060701
  Serious: Yes (Other)
  Sender: FDA-Public Use
  Company Number: HQWYE924607OCT05

PATIENT
  Sex: Female

DRUGS (4)
  1. VENLAFAXINE HCL [Suspect]
     Dosage: 75 MG 1X PER 1 DAY, ORAL
     Route: 048
  2. SEROQUEL [Concomitant]
  3. TRAZODONE HCL [Concomitant]
  4. DIAMOX #1 (ACETAZOLAMIDE) [Concomitant]

REACTIONS (3)
  - CAESAREAN SECTION [None]
  - DRUG CLEARANCE INCREASED [None]
  - DRUG EXPOSURE DURING PREGNANCY [None]
